FAERS Safety Report 18761497 (Version 4)
Quarter: 2022Q1

REPORT INFORMATION
  Report Type: Spontaneous
  Country: JP (occurrence: JP)
  Receive Date: 20210120
  Receipt Date: 20220331
  Transmission Date: 20220423
  Serious: Yes (Other)
  Sender: FDA-Public Use
  Company Number: JP-JNJFOC-20210129233

PATIENT
  Sex: Male

DRUGS (8)
  1. HALOMONTH [Suspect]
     Active Substance: HALOPERIDOL DECANOATE
     Indication: Schizophrenia
     Dosage: HALOMONTH
     Route: 030
     Dates: start: 202009, end: 2021
  2. HALOMONTH [Suspect]
     Active Substance: HALOPERIDOL DECANOATE
     Dosage: HALOMONTH
     Route: 030
     Dates: start: 2021
  3. HALOMONTH [Suspect]
     Active Substance: HALOPERIDOL DECANOATE
     Dosage: HALOMONTH
     Route: 030
     Dates: start: 2021
  4. HALOMONTH [Suspect]
     Active Substance: HALOPERIDOL DECANOATE
     Dosage: HALOMONTH
     Route: 030
     Dates: start: 2021
  5. HALOMONTH [Suspect]
     Active Substance: HALOPERIDOL DECANOATE
     Dosage: HALOMONTH
     Route: 030
     Dates: start: 2021
  6. HALOPERIDOL [Concomitant]
     Active Substance: HALOPERIDOL
     Indication: Schizophrenia
     Route: 048
     Dates: end: 2020
  7. HALOPERIDOL [Concomitant]
     Active Substance: HALOPERIDOL
     Indication: Schizophrenia
     Dosage: 5 MG TO 6 MG PER DAY
     Route: 048
  8. HALOPERIDOL [Concomitant]
     Active Substance: HALOPERIDOL
     Indication: Schizophrenia
     Route: 048
     Dates: start: 2021

REACTIONS (3)
  - Hallucination, auditory [Unknown]
  - Soliloquy [Unknown]
  - Therapeutic product effect incomplete [Unknown]

NARRATIVE: CASE EVENT DATE: 20210101
